FAERS Safety Report 5007647-2 (Version None)
Quarter: 2006Q2

REPORT INFORMATION
  Report Type: 
  Country: None (occurrence: None)
  Receive Date: 20060522
  Receipt Date: 20020529
  Transmission Date: 20061013
  Serious: Yes (Other)
  Sender: FDA-Public Use
  Company Number: PHBS2002JP06460

PATIENT
  Age: 67 Year
  Sex: Male

DRUGS (6)
  1. SANDIMMUNE [Suspect]
     Indication: DERMATITIS EXFOLIATIVE
     Dosage: 200 MG/D
     Route: 048
     Dates: start: 20010507, end: 20010101
  2. SANDIMMUNE [Suspect]
     Dosage: 200 MG/D
     Route: 048
     Dates: start: 20010704, end: 20010711
  3. SANDIMMUNE [Suspect]
     Dosage: 100 MG/D
     Route: 048
     Dates: start: 20010712, end: 20010725
  4. SANDIMMUNE [Suspect]
     Dosage: 200 MG/D
     Route: 048
     Dates: start: 20010726, end: 20010912
  5. PREDNISOLONE [Suspect]
     Indication: DERMATITIS EXFOLIATIVE
     Dosage: 70 MG/D
     Route: 041
     Dates: start: 20010323
  6. NEORAL [Concomitant]
     Indication: DERMATITIS EXFOLIATIVE
     Dosage: 100 MG/D
     Route: 048
     Dates: start: 20010913, end: 20010725

REACTIONS (8)
  - ANGIOGRAM ABNORMAL [None]
  - BLOOD IMMUNOGLOBULIN E INCREASED [None]
  - DRUG LEVEL FLUCTUATING [None]
  - PAPILLOEDEMA [None]
  - RETINOPATHY [None]
  - SCOTOMA [None]
  - VISUAL ACUITY REDUCED [None]
  - VISUAL FIELD DEFECT [None]
